FAERS Safety Report 6355312-1 (Version None)
Quarter: 2009Q3

REPORT INFORMATION
  Report Type: 
  Country: None (occurrence: None)
  Receive Date: 20090914
  Receipt Date: 20090903
  Transmission Date: 20100115
  Serious: Yes (Other)
  Sender: FDA-Public Use
  Company Number: PHHY2009CA37652

PATIENT
  Sex: Female

DRUGS (2)
  1. DIOVAN [Suspect]
     Dosage: 1 TABLET (160 MG) DAILY
     Route: 048
  2. ASPIRIN [Concomitant]
     Dosage: 81 MG DAILY

REACTIONS (2)
  - BACK PAIN [None]
  - TOOTH ABSCESS [None]
